FAERS Safety Report 12208552 (Version 2)
Quarter: 2016Q2

REPORT INFORMATION
  Report Type: Report from Study
  Country: US (occurrence: US)
  Receive Date: 20160324
  Receipt Date: 20160422
  Transmission Date: 20160815
  Serious: No
  Sender: FDA-Public Use
  Company Number: US-MDT-ADR-2016-00558

PATIENT
  Age: 51 Year
  Sex: Male

DRUGS (12)
  1. BUPIVACAINE. [Suspect]
     Active Substance: BUPIVACAINE
     Dosage: 15.647MG/DAY
     Route: 037
  2. FENTANYL. [Suspect]
     Active Substance: FENTANYL
     Dosage: 265.78 MCG/DAY
     Route: 037
     Dates: start: 20160316
  3. CLONIDINE. [Suspect]
     Active Substance: CLONIDINE
     Dosage: 312.94MCG/DAY
     Route: 037
  4. COMPOUNDED BACLOFEN [Suspect]
     Active Substance: BACLOFEN
     Indication: PAIN
     Dosage: 225.61 MCG/DAY
     Route: 037
  5. FENTANYL. [Suspect]
     Active Substance: FENTANYL
     Dosage: 225.61 MCG/DAY
     Route: 037
  6. BUPIVACAINE. [Suspect]
     Active Substance: BUPIVACAINE
     Dosage: 14.100 MG/DAY
     Route: 037
  7. BUPIVACAINE. [Suspect]
     Active Substance: BUPIVACAINE
     Dosage: 16.611 MG/DAY
     Route: 037
     Dates: start: 20160316
  8. COMPOUNDED BACLOFEN [Suspect]
     Active Substance: BACLOFEN
     Indication: PAIN
     Dosage: 250.35MCG/DAY
     Route: 037
  9. CLONIDINE. [Suspect]
     Active Substance: CLONIDINE
     Dosage: 332.23 MCG/DAY
     Route: 037
     Dates: start: 20160316
  10. COMPOUNDED BACLOFEN [Suspect]
     Active Substance: BACLOFEN
     Dosage: 265.78 MCG/DAY
     Route: 037
     Dates: start: 20160316
  11. CLONIDINE. [Suspect]
     Active Substance: CLONIDINE
     Dosage: 282.01 MCG/DAY
     Route: 037
  12. FENTANYL. [Suspect]
     Active Substance: FENTANYL
     Dosage: 250.35MCG/DAY
     Route: 037

REACTIONS (2)
  - Implant site extravasation [Unknown]
  - Seroma [Unknown]

NARRATIVE: CASE EVENT DATE: 20160316
